FAERS Safety Report 21738057 (Version 1)
Quarter: 2022Q4

REPORT INFORMATION
  Report Type: Spontaneous
  Country: CN (occurrence: CN)
  Receive Date: 20221216
  Receipt Date: 20221216
  Transmission Date: 20230112
  Serious: Yes (Other)
  Sender: FDA-Public Use
  Company Number: CN-009507513-2212CHN004133

PATIENT
  Age: 66 Year
  Sex: Male
  Weight: 72 kg

DRUGS (18)
  1. CASPOFUNGIN ACETATE [Suspect]
     Active Substance: CASPOFUNGIN ACETATE
     Indication: Pneumocystis jirovecii pneumonia
     Dosage: 50 MILLIGRAM, QD
     Route: 041
     Dates: start: 20210617, end: 20210624
  2. COTRIMOXAZOLE [Suspect]
     Active Substance: SULFAMETHOXAZOLE\TRIMETHOPRIM
     Indication: Pneumocystis jirovecii pneumonia
     Dosage: 2 DOSAGE FORM, TID
     Route: 048
     Dates: start: 20210614, end: 20210624
  3. MOXIFLOXACIN [Suspect]
     Active Substance: MOXIFLOXACIN
     Indication: Pneumocystis jirovecii pneumonia
     Dosage: 0.4 GRAM, QD
     Route: 041
     Dates: start: 20210616, end: 20210624
  4. GANCICLOVIR [Suspect]
     Active Substance: GANCICLOVIR
     Indication: Pneumocystis jirovecii pneumonia
     Dosage: 150 MILLIGRAM, QD
     Route: 041
     Dates: start: 20210616, end: 20210624
  5. PERAMIVIR [Suspect]
     Active Substance: PERAMIVIR
     Indication: Pneumocystis jirovecii pneumonia
     Dosage: 0.3 GRAM, QD
     Route: 041
     Dates: start: 20210617, end: 20210624
  6. METHYLPREDNISOLONE [Concomitant]
     Active Substance: METHYLPREDNISOLONE
     Dosage: 8 MILLIGRAM, QD
     Dates: start: 20210604, end: 20210611
  7. METHYLPREDNISOLONE [Concomitant]
     Active Substance: METHYLPREDNISOLONE
     Dosage: 20 MILLIGRAM, QD
     Route: 041
     Dates: start: 20210614
  8. COATED ALDEHYDE OXYSTARCH [Concomitant]
     Indication: Nephroprotective therapy
     Dosage: 2.5 GRAM, TID
     Route: 048
     Dates: start: 20210614
  9. CALCIUM DOBESILATE [Concomitant]
     Active Substance: CALCIUM DOBESILATE
     Indication: Nephroprotective therapy
     Dosage: 0.25 GRAM, BID
     Route: 048
     Dates: start: 20210614
  10. ESOMEPRAZOLE [Concomitant]
     Active Substance: ESOMEPRAZOLE
     Dosage: 40 MILLIGRAM, QD
     Route: 041
     Dates: start: 20210614
  11. ROXADUSTAT [Concomitant]
     Active Substance: ROXADUSTAT
     Indication: Nephrogenic anaemia
     Dosage: 100MG PO, TIW
     Route: 048
     Dates: start: 20210614
  12. SULODEXIDE [Concomitant]
     Active Substance: SULODEXIDE
     Indication: Thrombosis prophylaxis
     Dosage: 250LSU PO, QD
     Dates: start: 20210614
  13. CALCITRIOL [Concomitant]
     Active Substance: CALCITRIOL
     Indication: Osteoporosis
     Dosage: 0.25 MICROGRAM, QD
     Route: 048
     Dates: start: 20210614
  14. CALCITRIOL [Concomitant]
     Active Substance: CALCITRIOL
     Indication: Osteoporosis prophylaxis
  15. SODIUM BICARBONATE [Concomitant]
     Active Substance: SODIUM BICARBONATE
     Dosage: 1 GRAM, TID
     Route: 048
     Dates: start: 20210617
  16. NADROPARIN CALCIUM [Concomitant]
     Active Substance: NADROPARIN CALCIUM
     Dosage: 6150 AXAIU SC, QD
     Route: 058
     Dates: start: 20210617, end: 20210620
  17. THYMALFASIN [Concomitant]
     Active Substance: THYMALFASIN
     Dosage: 1.6MG SC, BIW
     Route: 058
     Dates: start: 20210617
  18. HUMAN IMMUNOGLOBULIN G [Concomitant]
     Active Substance: HUMAN IMMUNOGLOBULIN G
     Dosage: 2.5G IVGTT QD
     Route: 041
     Dates: start: 20210617

REACTIONS (2)
  - Pancytopenia [Not Recovered/Not Resolved]
  - Product use in unapproved indication [Unknown]

NARRATIVE: CASE EVENT DATE: 20210617
